FAERS Safety Report 5167745-X (Version None)
Quarter: 2006Q4

REPORT INFORMATION
  Report Type: 
  Country: None (occurrence: None)
  Receive Date: 20061208
  Receipt Date: 20061201
  Transmission Date: 20070319
  Serious: Yes (Other)
  Sender: FDA-Public Use
  Company Number: US-JNJFOC-20061200848

PATIENT
  Sex: Male
  Weight: 92.99 kg

DRUGS (13)
  1. INFLIXIMAB [Suspect]
     Indication: RHEUMATOID ARTHRITIS
     Route: 042
  2. OMEGA 3 [Concomitant]
     Dosage: 4 TABS DAILY
  3. ATENOLOL [Concomitant]
  4. FOLIC ACID [Concomitant]
  5. IBUPROFEN [Concomitant]
  6. LOTREL [Concomitant]
  7. PLAVIX [Concomitant]
  8. POTASSIUM ACETATE [Concomitant]
  9. PREVACID [Concomitant]
  10. TRIAMTERENE AND HYDROCHLOROTHIAZIDE [Concomitant]
  11. ASPIRIN [Concomitant]
  12. ZOCOR [Concomitant]
  13. NIASPAN [Concomitant]

REACTIONS (2)
  - B-CELL LYMPHOMA [None]
  - MYCOSIS FUNGOIDES [None]
